FAERS Safety Report 25468089 (Version 1)
Quarter: 2025Q2

REPORT INFORMATION
  Report Type: Spontaneous
  Country: GB (occurrence: GB)
  Receive Date: 20250623
  Receipt Date: 20250623
  Transmission Date: 20250717
  Serious: Yes (Other)
  Sender: PFIZER
  Company Number: None

PATIENT
  Age: 20 Year

DRUGS (1)
  1. METHOTREXATE SODIUM [Suspect]
     Active Substance: METHOTREXATE SODIUM

REACTIONS (6)
  - Skin burning sensation [Unknown]
  - Skin mass [Unknown]
  - Food allergy [Unknown]
  - Pruritus [Unknown]
  - Rash papular [Unknown]
  - Rash erythematous [Unknown]
